FAERS Safety Report 5486979-8 (Version None)
Quarter: 2007Q4

REPORT INFORMATION
  Report Type: 
  Country: None (occurrence: None)
  Receive Date: 20071012
  Receipt Date: 20071012
  Transmission Date: 20080405
  Serious: Yes (Other)
  Sender: FDA-Public Use
  Company Number: None

PATIENT
  Sex: Female

DRUGS (1)
  1. LIQUI TEARS BAUSCH + LOMB [Suspect]
     Indication: DRY EYE

REACTIONS (2)
  - PERIORBITAL DISORDER [None]
  - SKIN BURNING SENSATION [None]
